FAERS Safety Report 25153816 (Version 3)
Quarter: 2025Q4

REPORT INFORMATION
  Report Type: Report from Study
  Country: EU (occurrence: EU)
  Receive Date: 20250403
  Receipt Date: 20251112
  Transmission Date: 20260119
  Serious: Yes (Hospitalization)
  Sender: ABBVIE
  Company Number: EU-ABBVIE-6201901

PATIENT
  Age: 65 Year
  Sex: Male
  Weight: 67 kg

DRUGS (22)
  1. FOSCARBIDOPA\FOSLEVODOPA [Suspect]
     Active Substance: FOSCARBIDOPA\FOSLEVODOPA
     Indication: Parkinson^s disease
     Dosage: LOADING DOSE DRUG: 0.6 ML?CONTINUOUS RATE PUMP SETTING BASE 0.37 ML/H?CONTINUOUS RATE PUMP SETTIN...
     Route: 058
     Dates: start: 20241204, end: 20241204
  2. FOSCARBIDOPA\FOSLEVODOPA [Suspect]
     Active Substance: FOSCARBIDOPA\FOSLEVODOPA
     Dosage: LOADING DOSE DRUG: 0.6 ML?CONTINUOUS RATE PUMP SETTING BASE 0.39 ML/H?CONTINUOUS RATE PUMP SETTIN...
     Route: 058
     Dates: start: 20241204, end: 20241205
  3. FOSCARBIDOPA\FOSLEVODOPA [Suspect]
     Active Substance: FOSCARBIDOPA\FOSLEVODOPA
     Dosage: LOADING DOSE DRUG: 0.6 ML?CONTINUOUS RATE PUMP SETTING BASE 0.38 ML/H?CONTINUOUS RATE PUMP SETTIN...
     Route: 058
     Dates: start: 20241205, end: 20241209
  4. FOSCARBIDOPA\FOSLEVODOPA [Suspect]
     Active Substance: FOSCARBIDOPA\FOSLEVODOPA
     Dosage: LOADING DOSE DRUG: 0.6 ML?CONTINUOUS RATE PUMP SETTING BASE 0.40 ML/H?CONTINUOUS RATE PUMP SETTIN...
     Route: 058
     Dates: start: 20241209, end: 20241210
  5. FOSCARBIDOPA\FOSLEVODOPA [Suspect]
     Active Substance: FOSCARBIDOPA\FOSLEVODOPA
     Dosage: LOADING DOSE DRUG: 0.6 ML?CONTINUOUS RATE PUMP SETTING BASE 0.42 ML/H?CONTINUOUS RATE PUMP SETTIN...
     Route: 058
     Dates: start: 20241210, end: 20241211
  6. FOSCARBIDOPA\FOSLEVODOPA [Suspect]
     Active Substance: FOSCARBIDOPA\FOSLEVODOPA
     Dosage: LOADING DOSE DRUG: 0.6 ML?CONTINUOUS RATE PUMP SETTING BASE 0.45 ML/H?CONTINUOUS RATE PUMP SETTIN...
     Route: 058
     Dates: start: 20241212, end: 20241213
  7. FOSCARBIDOPA\FOSLEVODOPA [Suspect]
     Active Substance: FOSCARBIDOPA\FOSLEVODOPA
     Dosage: LOADING DOSE DRUG: 0.6 ML?CONTINUOUS RATE PUMP SETTING BASE 0.46 ML/H?CONTINUOUS RATE PUMP SETTIN...
     Route: 058
     Dates: start: 20241213, end: 20241216
  8. FOSCARBIDOPA\FOSLEVODOPA [Suspect]
     Active Substance: FOSCARBIDOPA\FOSLEVODOPA
     Dosage: LOADING DOSE DRUG: 0.6 ML?CONTINUOUS RATE PUMP SETTING BASE 0.48 ML/H?CONTINUOUS RATE PUMP SETTIN...
     Route: 058
     Dates: start: 20241216, end: 20241217
  9. FOSCARBIDOPA\FOSLEVODOPA [Suspect]
     Active Substance: FOSCARBIDOPA\FOSLEVODOPA
     Dosage: LOADING DOSE DRUG: 0.6 ML?CONTINUOUS RATE PUMP SETTING BASE 0.50 ML/H?CONTINUOUS RATE PUMP SETTIN...
     Route: 058
     Dates: start: 20241217, end: 20250313
  10. FOSCARBIDOPA\FOSLEVODOPA [Suspect]
     Active Substance: FOSCARBIDOPA\FOSLEVODOPA
     Dosage: LOADING DOSE DRUG: 0.6 ML?CONTINUOUS RATE PUMP SETTING BASE 0.48 ML/H?CONTINUOUS RATE PUMP SETTIN...
     Route: 058
     Dates: start: 20250313
  11. METFORMIN [Concomitant]
     Active Substance: METFORMIN HYDROCHLORIDE
     Indication: Diabetes mellitus
     Route: 048
     Dates: start: 2023, end: 202502
  12. CHOLECALCIFEROL [Concomitant]
     Active Substance: CHOLECALCIFEROL
     Indication: Vitamin D deficiency
     Route: 048
     Dates: start: 2022
  13. FOLIC ACID [Concomitant]
     Active Substance: FOLIC ACID
     Indication: Folate deficiency
     Route: 048
     Dates: start: 2022
  14. DULOXETINE [Concomitant]
     Active Substance: DULOXETINE
     Indication: Depression
     Route: 048
     Dates: start: 20241205
  15. RAMIPRIL [Concomitant]
     Active Substance: RAMIPRIL
     Indication: Hypertension
     Route: 048
     Dates: start: 20241211
  16. RAMIPRIL [Concomitant]
     Active Substance: RAMIPRIL
     Indication: Hypertension
     Route: 048
     Dates: start: 20241211
  17. RAMIPRIL [Concomitant]
     Active Substance: RAMIPRIL
     Indication: Hypertension
     Route: 048
     Dates: start: 20241209, end: 20241210
  18. OPICAPONE [Concomitant]
     Active Substance: OPICAPONE
     Indication: Parkinson^s disease
     Route: 048
     Dates: start: 20241217
  19. SAFINAMIDE [Concomitant]
     Active Substance: SAFINAMIDE
     Indication: Parkinson^s disease
     Route: 048
     Dates: start: 2021, end: 20241211
  20. SAFINAMIDE [Concomitant]
     Active Substance: SAFINAMIDE
     Indication: Parkinson^s disease
     Route: 048
     Dates: start: 20241211
  21. ROTIGOTINE [Concomitant]
     Active Substance: ROTIGOTINE
     Indication: Parkinson^s disease
     Route: 062
     Dates: start: 20241206, end: 20241216
  22. ROTIGOTINE [Concomitant]
     Active Substance: ROTIGOTINE
     Indication: Parkinson^s disease
     Route: 062
     Dates: start: 20241217, end: 20250414

REACTIONS (1)
  - Abscess [Recovered/Resolved]

NARRATIVE: CASE EVENT DATE: 20250319
